FAERS Safety Report 4438843-0 (Version None)
Quarter: 2004Q3

REPORT INFORMATION
  Report Type: 
  Country: None (occurrence: None)
  Receive Date: 20040901
  Receipt Date: 20040728
  Transmission Date: 20050211
  Serious: Yes (Disabling)
  Sender: FDA-Public Use
  Company Number: 200412475JP

PATIENT
  Age: 84 Year
  Sex: Female
  Weight: 47.5 kg

DRUGS (5)
  1. ALLEGRA [Suspect]
     Indication: PRURITUS
     Route: 048
     Dates: start: 20040430, end: 20040505
  2. WARFARIN SODIUM [Concomitant]
     Indication: ATRIAL FIBRILLATION
     Route: 048
     Dates: start: 19980303, end: 20040505
  3. PARAMIDIN [Concomitant]
     Indication: ATRIAL FIBRILLATION
     Route: 048
     Dates: start: 19980303, end: 20040505
  4. SELECTOL [Concomitant]
     Indication: HYPERTENSION
     Route: 048
     Dates: start: 19980414, end: 20040505
  5. ALDACTONE-A [Concomitant]
     Indication: CARDIAC FAILURE
     Route: 048
     Dates: start: 20010405, end: 20040505

REACTIONS (6)
  - ASTHENIA [None]
  - DRUG INTERACTION [None]
  - EXTRADURAL HAEMATOMA [None]
  - LABORATORY TEST ABNORMAL [None]
  - PARAPLEGIA [None]
  - SPINAL DISORDER [None]
